FAERS Safety Report 18172635 (Version 2)
Quarter: 2022Q2

REPORT INFORMATION
  Report Type: Report from Study
  Country: US (occurrence: US)
  Receive Date: 20200820
  Receipt Date: 20220519
  Transmission Date: 20220720
  Serious: Yes (Hospitalization, Other)
  Sender: FDA-Public Use
  Company Number: US-ABBVIE-20K-163-3527651-00

PATIENT
  Age: 34 Year
  Sex: Female

DRUGS (8)
  1. CREON [Suspect]
     Active Substance: PANCRELIPASE AMYLASE\PANCRELIPASE LIPASE\PANCRELIPASE PROTEASE
     Indication: Pancreatitis
     Dosage: BEFORE LAST MENSTRUAL PERIOD TILL THIRTY ONE WEEKS AND SIX DAYS PREGNANT?25000
     Route: 048
  2. SYNTHROID [Suspect]
     Active Substance: LEVOTHYROXINE SODIUM
     Indication: Hypothyroidism
     Dosage: BEFORE LAST MENSTRUAL PERIOD TILL THIRTY ONE WEEKS AND SIX DAYS PREGNANT
     Route: 048
  3. ABILIFY [Suspect]
     Active Substance: ARIPIPRAZOLE
     Indication: Anxiety
     Dosage: BEFORE LAST MENSTRUAL PERIOD TILL END OF PREGNANCY
     Route: 065
  4. APIDRA [Suspect]
     Active Substance: INSULIN GLULISINE
     Indication: Type 2 diabetes mellitus
     Dosage: BEFORE LAST MENSTRUAL PERIOD TILL THIRTY ONE WEEKS AND SIX DAYS PREGNANT
     Route: 065
  5. CYMBALTA [Suspect]
     Active Substance: DULOXETINE HYDROCHLORIDE
     Indication: Depression
     Dosage: BEFORE LAST MENSTRUAL PERIOD TILL THIRTY ONE WEEKS AND SIX DAYS PREGNANT
     Route: 065
  6. LANTUS [Suspect]
     Active Substance: INSULIN GLARGINE
     Indication: Type 1 diabetes mellitus
     Dosage: BEFORE LAST MENSTRUAL PERIOD TILL THIRTY ONE WEEKS AND SIX DAYS PREGNANT?100 IU/ML
     Route: 065
  7. OMEPRAZOLE [Suspect]
     Active Substance: OMEPRAZOLE
     Indication: Nausea
     Dosage: BEFORE LAST MENSTRUAL PERIOD TILL THIRTY ONE WEEKS AND SIX DAYS PREGNANT
     Route: 065
  8. PERCOCET [Suspect]
     Active Substance: ACETAMINOPHEN\OXYCODONE HYDROCHLORIDE
     Indication: Pancreatitis
     Dosage: BEFORE LAST MENSTRUAL PERIOD TILL FOUR WEEKS AND SIX DAYS PREGNANT
     Route: 065

REACTIONS (16)
  - Autoimmune pancreatitis [Recovered/Resolved]
  - Impaired gastric emptying [Unknown]
  - Seizure [Recovered/Resolved]
  - Postpartum sepsis [Recovered/Resolved]
  - Retained products of conception [Recovered/Resolved]
  - Postpartum haemorrhage [Recovered/Resolved]
  - Premature labour [Unknown]
  - Premature delivery [Unknown]
  - Morning sickness [Recovered/Resolved]
  - Hyperemesis gravidarum [Recovered/Resolved]
  - Product use in unapproved indication [Unknown]
  - Pancreatic mass [Unknown]
  - Thrombocytosis [Unknown]
  - Retained placenta or membranes [Recovered/Resolved]
  - Maternal exposure during pregnancy [Unknown]
  - Live birth [Unknown]

NARRATIVE: CASE EVENT DATE: 20160225
